FAERS Safety Report 8579094-8 (Version None)
Quarter: 2012Q3

REPORT INFORMATION
  Report Type: 
  Country: None (occurrence: None)
  Receive Date: 20120808
  Receipt Date: 20120802
  Transmission Date: 20120928
  Serious: Yes (Other)
  Sender: FDA-Public Use
  Company Number: US-PFIZER INC-2012188818

PATIENT
  Age: 41 Year
  Sex: Male
  Weight: 113 kg

DRUGS (6)
  1. LYRICA [Suspect]
     Indication: PERONEAL NERVE INJURY
     Dosage: 50 MG, 3X/DAY
     Route: 048
     Dates: start: 20050101, end: 20050101
  2. LYRICA [Suspect]
     Indication: NEUROPATHY PERIPHERAL
  3. XANAX [Concomitant]
     Indication: ANXIETY
     Dosage: UNK
  4. NEURONTIN [Suspect]
     Indication: PERONEAL NERVE INJURY
     Dosage: UNK
     Route: 048
     Dates: start: 20050101, end: 20051001
  5. CYMBALTA [Concomitant]
     Indication: ANXIETY
     Dosage: UNK
  6. NEURONTIN [Suspect]
     Indication: NEUROPATHY PERIPHERAL

REACTIONS (6)
  - ANGER [None]
  - PAIN [None]
  - PSYCHOTIC BEHAVIOUR [None]
  - NERVE INJURY [None]
  - IMPATIENCE [None]
  - HYPOAESTHESIA [None]
